FAERS Safety Report 23113875 (Version 2)
Quarter: 2023Q4

REPORT INFORMATION
  Report Type: Spontaneous
  Country: US (occurrence: US)
  Receive Date: 20231027
  Receipt Date: 20231106
  Transmission Date: 20240109
  Serious: No
  Sender: FDA-Public Use
  Company Number: US-BRISTOL-MYERS SQUIBB COMPANY-2023-152027

PATIENT
  Age: 7 Decade

DRUGS (5)
  1. NIVOLUMAB [Suspect]
     Active Substance: NIVOLUMAB
     Indication: Clear cell renal cell carcinoma
     Route: 042
     Dates: start: 202103
  2. CABOZANTINIB [Suspect]
     Active Substance: CABOZANTINIB
     Indication: Clear cell renal cell carcinoma
     Route: 048
     Dates: start: 202103
  3. CABOZANTINIB [Suspect]
     Active Substance: CABOZANTINIB
     Dosage: EVERY OTHER DAY
     Route: 048
     Dates: start: 202108, end: 202110
  4. CABOZANTINIB [Suspect]
     Active Substance: CABOZANTINIB
     Dosage: EVERY OTHER DAY
     Route: 048
     Dates: start: 202111
  5. CABOZANTINIB [Suspect]
     Active Substance: CABOZANTINIB
     Dosage: EVERY OTHER DAY
     Route: 048
     Dates: start: 202203, end: 202302

REACTIONS (1)
  - Liver function test increased [Unknown]

NARRATIVE: CASE EVENT DATE: 20230201
